FAERS Safety Report 8075606-1 (Version None)
Quarter: 2012Q1

REPORT INFORMATION
  Report Type: 
  Country: None (occurrence: None)
  Receive Date: 20120127
  Receipt Date: 20120112
  Transmission Date: 20120608
  Serious: Yes (Other)
  Sender: FDA-Public Use
  Company Number: CA-JNJFOC-20120110910

PATIENT
  Sex: Female
  Weight: 68.04 kg

DRUGS (4)
  1. METHOTREXATE [Concomitant]
  2. FOLIC ACID [Concomitant]
  3. REMICADE [Suspect]
     Indication: COLITIS ULCERATIVE
     Route: 042
     Dates: start: 20101001
  4. CYANOCOBALAMIN [Concomitant]

REACTIONS (4)
  - HEADACHE [None]
  - JOINT SWELLING [None]
  - ARTHRALGIA [None]
  - JOINT STIFFNESS [None]
